FAERS Safety Report 17713056 (Version 1)
Quarter: 2020Q2

REPORT INFORMATION
  Report Type: Spontaneous
  Country: US (occurrence: US)
  Receive Date: 20200427
  Receipt Date: 20200427
  Transmission Date: 20200714
  Serious: Yes (Life-Threatening)
  Sender: FDA-Public Use
  Company Number: None

PATIENT
  Age: 50 Year
  Sex: Female
  Weight: 90 kg

DRUGS (7)
  1. VITAMIN C PILLS [Concomitant]
  2. LISINOPRIL. [Concomitant]
     Active Substance: LISINOPRIL
  3. ZANTAC [Suspect]
     Active Substance: RANITIDINE HYDROCHLORIDE
     Indication: DYSPEPSIA
     Route: 048
     Dates: start: 19990228, end: 20180831
  4. BASAGLAR [Concomitant]
     Active Substance: INSULIN GLARGINE
  5. METFORMIN [Concomitant]
     Active Substance: METFORMIN HYDROCHLORIDE
  6. TRIAMTERINE HCTZ [Concomitant]
  7. IRON PILLS [Concomitant]
     Active Substance: IRON

REACTIONS (1)
  - Colon cancer [None]

NARRATIVE: CASE EVENT DATE: 20180711
